FAERS Safety Report 7105244 (Version 8)
Quarter: 2012Q4

REPORT INFORMATION
  Report Type: 
  Country: US (occurrence: US)
  Receive Date: 20090904
  Receipt Date: 20121129
  Transmission Date: 20130627
  Serious: Yes (Other)
  Sender: FDA-Public Use
  Company Number: US-JNJFOC-20070200885

PATIENT
  Sex: Female

DRUGS (7)
  1. RISPERDAL [Suspect]
     Indication: ANXIETY
     Route: 048
  2. RISPERDAL [Suspect]
     Indication: DEPRESSION
     Route: 048
  3. ZYPREXA [Suspect]
     Indication: ANXIETY
     Dosage: one-half
     Route: 048
  4. ZYPREXA [Suspect]
     Indication: DEPRESSION
     Dosage: one-half
     Route: 048
  5. ELAVIL [Suspect]
     Indication: DEPRESSION
     Route: 048
  6. CELEXA [Concomitant]
  7. WELLBUTRIN XL [Concomitant]

REACTIONS (2)
  - Type 2 diabetes mellitus [Unknown]
  - Weight increased [Recovering/Resolving]
